FAERS Safety Report 5111611-2 (Version None)
Quarter: 2006Q3

REPORT INFORMATION
  Report Type: 
  Country: None (occurrence: None)
  Receive Date: 20060922
  Receipt Date: 20060913
  Transmission Date: 20061208
  Serious: Yes (Other)
  Sender: FDA-Public Use
  Company Number: PHBS2006SE13990

PATIENT
  Age: 28 Year
  Sex: Female

DRUGS (1)
  1. TEGRETOL [Suspect]
     Route: 065

REACTIONS (1)
  - INFERTILITY FEMALE [None]
